FAERS Safety Report 4910028-0 (Version None)
Quarter: 2006Q1

REPORT INFORMATION
  Report Type: 
  Country: None (occurrence: None)
  Receive Date: 20060208
  Receipt Date: 20040603
  Transmission Date: 20060701
  Serious: Yes (Hospitalization)
  Sender: FDA-Public Use
  Company Number: 2004IM000208

PATIENT
  Age: 40 Year
  Sex: Male

DRUGS (2)
  1. ADVAFERON [Suspect]
     Indication: HEPATITIS C
     Dosage: 18 MU, QD, SUBCUTANEOUS
     Route: 058
     Dates: start: 20020225, end: 20020301
  2. ADVAFERON [Suspect]
     Indication: HEPATITIS C
     Dosage: 18 MU, QD, SUBCUTANEOUS
     Route: 058
     Dates: start: 20020311

REACTIONS (11)
  - ABNORMAL BEHAVIOUR [None]
  - ANXIETY [None]
  - CONFUSIONAL STATE [None]
  - ELECTROENCEPHALOGRAM ABNORMAL [None]
  - INSOMNIA [None]
  - LOGORRHOEA [None]
  - MANIA [None]
  - PERSECUTORY DELUSION [None]
  - PSYCHOMOTOR HYPERACTIVITY [None]
  - REFUSAL OF TREATMENT BY PATIENT [None]
  - RESTLESSNESS [None]
